FAERS Safety Report 18245652 (Version 1)
Quarter: 2020Q3

REPORT INFORMATION
  Report Type: Spontaneous
  Country: US (occurrence: US)
  Receive Date: 20200909
  Receipt Date: 20200909
  Transmission Date: 20201103
  Serious: Yes (Other)
  Sender: FDA-Public Use
  Company Number: US-CADILA HEALTHCARE LIMITED-US-ZYDUS-055462

PATIENT

DRUGS (1)
  1. BACLOFEN. [Suspect]
     Active Substance: BACLOFEN
     Indication: MUSCLE SPASTICITY
     Dosage: UNK
     Route: 065

REACTIONS (10)
  - Overdose [Unknown]
  - Respiratory depression [Recovered/Resolved]
  - Dyspnoea [Recovered/Resolved]
  - Autonomic nervous system imbalance [Recovered/Resolved]
  - Hypertension [Recovered/Resolved]
  - Palpitations [Recovered/Resolved]
  - Throat irritation [Recovered/Resolved]
  - Toxicity to various agents [Unknown]
  - Sinus tachycardia [Recovered/Resolved]
  - Somnolence [Recovered/Resolved]
